FAERS Safety Report 7429514-7 (Version None)
Quarter: 2011Q2

REPORT INFORMATION
  Report Type: 
  Country: None (occurrence: None)
  Receive Date: 20110421
  Receipt Date: 20110407
  Transmission Date: 20111010
  Serious: Yes (Hospitalization, Other)
  Sender: FDA-Public Use
  Company Number: US-CELGENEUS-163-21880-11031861

PATIENT
  Sex: Male
  Weight: 106.69 kg

DRUGS (12)
  1. PREDNISONE [Concomitant]
     Route: 065
  2. MEPRON [Concomitant]
     Route: 065
  3. OMEPRAZOLE [Concomitant]
     Route: 065
  4. REVLIMID [Suspect]
     Dosage: 10 MILLIGRAM
     Route: 048
     Dates: start: 20110301
  5. CELLCEPT [Concomitant]
     Route: 065
  6. MULTI-VITAMINS [Concomitant]
     Route: 065
  7. NYSTATIN [Concomitant]
     Route: 065
  8. ACYCLOVIR [Concomitant]
     Route: 065
  9. MAGNESIUM [Concomitant]
     Route: 065
  10. REVLIMID [Suspect]
     Dosage: 25 MILLIGRAM
     Route: 048
     Dates: start: 20110209, end: 20110101
  11. TACROLIMUS [Suspect]
     Route: 065
  12. FOLIC ACID [Concomitant]
     Route: 065

REACTIONS (4)
  - DEHYDRATION [None]
  - GRAFT VERSUS HOST DISEASE [None]
  - CHRONIC OBSTRUCTIVE PULMONARY DISEASE [None]
  - RENAL DISORDER [None]
